FAERS Safety Report 9659365 (Version 1)
Quarter: 2013Q4

REPORT INFORMATION
  Report Type: Spontaneous
  Country: PT (occurrence: PT)
  Receive Date: 20131031
  Receipt Date: 20131031
  Transmission Date: 20140711
  Serious: Yes (Hospitalization)
  Sender: FDA-Public Use
  Company Number: PT-JNJFOC-20131014439

PATIENT
  Sex: Female

DRUGS (1)
  1. HALDOL [Suspect]
     Indication: VOMITING
     Route: 048
     Dates: start: 201310

REACTIONS (4)
  - Masked facies [Recovered/Resolved]
  - Eye movement disorder [Recovered/Resolved]
  - Exposure during pregnancy [Unknown]
  - Off label use [Unknown]
